FAERS Safety Report 6012387-7 (Version None)
Quarter: 2008Q4

REPORT INFORMATION
  Report Type: 
  Country: None (occurrence: None)
  Receive Date: 20081218
  Receipt Date: 20080930
  Transmission Date: 20090506
  Serious: No
  Sender: FDA-Public Use
  Company Number: US-ASTRAZENECA-2008UW21040

PATIENT
  Age: 69 Year
  Sex: Female

DRUGS (10)
  1. SYMBICORT [Suspect]
     Indication: ASTHMA
     Dosage: 160/4.5 MCG 120 INHALATIONS, 2 PUFFS TWICE DAILY
     Route: 055
     Dates: start: 20080301
  2. ASPIRIN [Concomitant]
  3. FUROSEMIDE [Concomitant]
  4. POTASSIUM CHLORIDE [Concomitant]
  5. SALSALATE [Concomitant]
  6. METHENAMINE [Concomitant]
  7. ACTONEL [Concomitant]
  8. BACLOFEN [Concomitant]
  9. ACETAMINOPHEN AND HYDROCODONE BITARTRATE [Concomitant]
  10. METHYLTREXATE [Concomitant]

REACTIONS (1)
  - ALOPECIA [None]
